FAERS Safety Report 6822188-5 (Version None)
Quarter: 2010Q3

REPORT INFORMATION
  Report Type: 
  Country: None (occurrence: None)
  Receive Date: 20100708
  Receipt Date: 20100628
  Transmission Date: 20110219
  Serious: Yes (Hospitalization, Other)
  Sender: FDA-Public Use
  Company Number: US-RB-010296-10

PATIENT
  Age: 57 Year
  Sex: Female

DRUGS (3)
  1. MUCINEX DM [Suspect]
     Dosage: TOOK 1 TOTAL OF 3 MUCINEX DM, (ONE IN THE MORNING AND 2 AT NIGHT)
     Route: 048
     Dates: start: 20100325
  2. SYNTHROID ORAL 75 MG [Concomitant]
  3. SYNTHROID ORAL 50 MG [Concomitant]

REACTIONS (16)
  - ABDOMINAL PAIN [None]
  - ARRHYTHMIA [None]
  - ASTHENIA [None]
  - CHEST PAIN [None]
  - DEHYDRATION [None]
  - DIARRHOEA [None]
  - DIZZINESS [None]
  - DYSPNOEA [None]
  - FATIGUE [None]
  - HEADACHE [None]
  - HYPOAESTHESIA [None]
  - HYPOKALAEMIA [None]
  - PALPITATIONS [None]
  - PARAESTHESIA [None]
  - VISION BLURRED [None]
  - VOMITING [None]
